FAERS Safety Report 8595511-1 (Version None)
Quarter: 2012Q3

REPORT INFORMATION
  Report Type: 
  Country: None (occurrence: None)
  Receive Date: 20120815
  Receipt Date: 20120803
  Transmission Date: 20120928
  Serious: No
  Sender: FDA-Public Use
  Company Number: US-BAYER-2012-080349

PATIENT

DRUGS (2)
  1. ALEVE (CAPLET) [Suspect]
     Dosage: 5 DF, UNK
  2. TYLENOL [Concomitant]

REACTIONS (2)
  - EUPHORIC MOOD [None]
  - SOMNOLENCE [None]
